FAERS Safety Report 19088940 (Version 1)
Quarter: 2021Q2

REPORT INFORMATION
  Report Type: Spontaneous
  Country: US (occurrence: US)
  Receive Date: 20210403
  Receipt Date: 20210403
  Transmission Date: 20210717
  Serious: No
  Sender: FDA-Public Use
  Company Number: US-ASTRAZENECA-2021A165137

PATIENT

DRUGS (2)
  1. ORAL STEROIDS [Concomitant]
     Active Substance: UNSPECIFIED INGREDIENT
     Dosage: DAILY
  2. FASENRA [Suspect]
     Active Substance: BENRALIZUMAB
     Indication: ASTHMA
     Route: 058

REACTIONS (2)
  - Drug ineffective [Unknown]
  - Asthma [Unknown]
